FAERS Safety Report 23320240 (Version 1)
Quarter: 2023Q4

REPORT INFORMATION
  Report Type: Spontaneous
  Country: CA (occurrence: CA)
  Receive Date: 20231220
  Receipt Date: 20231220
  Transmission Date: 20240110
  Serious: Yes (Other)
  Sender: FDA-Public Use
  Company Number: CA-JNJFOC-20231235693

PATIENT
  Sex: Female

DRUGS (14)
  1. REMICADE [Suspect]
     Active Substance: INFLIXIMAB
     Indication: Product used for unknown indication
     Route: 041
  2. ADALIMUMAB [Suspect]
     Active Substance: ADALIMUMAB\ISOPROPYL ALCOHOL
     Indication: Maternal exposure during breast feeding
     Route: 065
  3. ADALIMUMAB [Suspect]
     Active Substance: ADALIMUMAB\ISOPROPYL ALCOHOL
     Indication: Exposure during pregnancy
  4. ERELZI [Suspect]
     Active Substance: ETANERCEPT-SZZS
     Indication: Maternal exposure during breast feeding
     Route: 065
  5. ERELZI [Suspect]
     Active Substance: ETANERCEPT-SZZS
     Indication: Exposure during pregnancy
  6. INFLIXIMAB [Suspect]
     Active Substance: INFLIXIMAB
     Indication: Maternal exposure during breast feeding
     Route: 065
  7. INFLIXIMAB [Suspect]
     Active Substance: INFLIXIMAB
     Indication: Exposure during pregnancy
  8. AZATHIOPRINE [Concomitant]
     Active Substance: AZATHIOPRINE
     Indication: Product used for unknown indication
     Route: 065
  9. ENTYVIO [Concomitant]
     Active Substance: VEDOLIZUMAB
     Indication: Product used for unknown indication
     Route: 065
  10. SIMPONI [Concomitant]
     Active Substance: GOLIMUMAB
     Indication: Product used for unknown indication
     Route: 065
  11. ROTARIX [Concomitant]
     Active Substance: HUMAN ROTAVIRUS A TYPE G1P(8) STRAIN RIX4414 LIVE ANTIGEN
     Indication: Product used for unknown indication
     Route: 065
  12. ROTAVIRUS VACCINE LIVE REASSORT ORAL 5V [Concomitant]
     Indication: Product used for unknown indication
     Route: 065
  13. TACROLIMUS [Concomitant]
     Active Substance: TACROLIMUS
     Indication: Product used for unknown indication
     Route: 065
  14. USTEKINUMAB [Concomitant]
     Active Substance: USTEKINUMAB

REACTIONS (12)
  - Gastrooesophageal reflux disease [Recovered/Resolved]
  - Ill-defined disorder [Recovered/Resolved]
  - Immunoglobulins abnormal [Recovered/Resolved]
  - Irritability postvaccinal [Recovered/Resolved]
  - Lymphocyte count abnormal [Recovered/Resolved]
  - Mitogen stimulation test abnormal [Recovered/Resolved]
  - Vomiting [Recovered/Resolved]
  - Vulvovaginal rash [Recovered/Resolved]
  - White blood cell count abnormal [Recovered/Resolved]
  - Neutropenia [Recovered/Resolved]
  - Diarrhoea [Recovered/Resolved]
  - Anaemia [Recovered/Resolved]
